FAERS Safety Report 7815931-X (Version None)
Quarter: 2011Q4

REPORT INFORMATION
  Report Type: 
  Country: None (occurrence: None)
  Receive Date: 20111014
  Receipt Date: 20110930
  Transmission Date: 20120403
  Serious: Yes (Hospitalization)
  Sender: FDA-Public Use
  Company Number: DK-ROCHE-801852

PATIENT
  Sex: Male

DRUGS (9)
  1. MABTHERA [Suspect]
     Route: 042
     Dates: start: 20090628, end: 20091117
  2. MABTHERA [Suspect]
     Indication: HAEMOLYSIS
     Dosage: EVERY 2 WEEKS, THEN MAINTAINANCE EVERY 2 MONTHS
     Route: 042
     Dates: start: 20100714, end: 20110719
  3. CYCLOPHOSPHAMIDE [Suspect]
     Indication: HAEMOLYSIS
  4. PREDNISOLONE [Concomitant]
     Indication: HAEMOLYSIS
     Route: 048
     Dates: start: 20030416, end: 20030910
  5. CYCLOPHOSPHAMIDE [Suspect]
     Indication: CHRONIC LYMPHOCYTIC LEUKAEMIA
     Route: 048
     Dates: start: 20070220, end: 20070529
  6. MABTHERA [Suspect]
     Indication: CHRONIC LYMPHOCYTIC LEUKAEMIA REFRACTORY
     Route: 042
     Dates: start: 20070220, end: 20070314
  7. FLUDARABINE PHOSPHATE [Suspect]
     Indication: CHRONIC LYMPHOCYTIC LEUKAEMIA
     Route: 065
  8. CHLORAMBUCIL [Concomitant]
     Indication: CHRONIC LYMPHOCYTIC LEUKAEMIA
     Route: 048
     Dates: start: 20021104, end: 20040906
  9. CHLORAMBUCIL [Concomitant]
     Dates: start: 20090602, end: 20110816

REACTIONS (1)
  - PROGRESSIVE MULTIFOCAL LEUKOENCEPHALOPATHY [None]
